FAERS Safety Report 8486052-0 (Version None)
Quarter: 2012Q3

REPORT INFORMATION
  Report Type: 
  Country: None (occurrence: None)
  Receive Date: 20120703
  Receipt Date: 20120629
  Transmission Date: 20120928
  Serious: Yes (Other)
  Sender: FDA-Public Use
  Company Number: NL-ROXANE LABORATORIES, INC.-2012-RO-01501RO

PATIENT
  Age: 12 Month
  Sex: Male

DRUGS (9)
  1. ATENOLOL [Suspect]
     Indication: HYPERTENSION
  2. FUROSEMIDE [Suspect]
     Indication: HYPERTENSION
  3. SODIUM POLYSTYRENE SULFONATE [Suspect]
     Indication: HYPERKALAEMIA
     Route: 048
  4. AMLODIPINE [Suspect]
     Indication: HYPERTENSION
  5. ACTH [Suspect]
     Indication: HYPOALDOSTERONISM
  6. MISOPROSTOL [Suspect]
     Indication: HYPOALDOSTERONISM
     Dosage: 400 MG
     Route: 048
  7. FUROSEMIDE [Suspect]
     Indication: HYPOALDOSTERONISM
     Route: 042
  8. HYDROCHLOROTHIAZIDE [Suspect]
     Indication: HYPOALDOSTERONISM
     Route: 048
  9. HYDROCHLOROTHIAZIDE [Suspect]
     Indication: HYPERTENSION

REACTIONS (4)
  - DEHYDRATION [None]
  - RENAL FAILURE CHRONIC [None]
  - RENIN DECREASED [None]
  - DRUG INEFFECTIVE [None]
